FAERS Safety Report 24904070 (Version 2)
Quarter: 2025Q1

REPORT INFORMATION
  Report Type: Spontaneous
  Country: US (occurrence: US)
  Receive Date: 20250130
  Receipt Date: 20250326
  Transmission Date: 20250409
  Serious: Yes (Other)
  Sender: UCB
  Company Number: US-UCBSA-2025004863

PATIENT
  Age: 41 Year
  Sex: Male
  Weight: 162.83 kg

DRUGS (1)
  1. BIMZELX [Suspect]
     Active Substance: BIMEKIZUMAB-BKZX
     Indication: Psoriasis
     Dosage: 320 MILLIGRAM, EV 4 WEEKS
     Route: 058
     Dates: start: 202501

REACTIONS (2)
  - Abdominal discomfort [Unknown]
  - Product availability issue [Unknown]

NARRATIVE: CASE EVENT DATE: 20250101
